FAERS Safety Report 9558146 (Version 3)
Quarter: 2013Q4

REPORT INFORMATION
  Report Type: Spontaneous
  Country: US (occurrence: US)
  Receive Date: 20130926
  Receipt Date: 20131115
  Transmission Date: 20140711
  Serious: No
  Sender: FDA-Public Use
  Company Number: US-BIOGENIDEC-2013BI041852

PATIENT
  Age: 62 Year
  Sex: Female

DRUGS (6)
  1. TECFIDERA [Suspect]
     Indication: MULTIPLE SCLEROSIS
     Route: 048
     Dates: start: 20130424, end: 20130430
  2. TECFIDERA [Suspect]
     Indication: MULTIPLE SCLEROSIS
     Route: 048
     Dates: start: 20130501, end: 20130904
  3. PLAQUENIL [Concomitant]
  4. VICODIN [Concomitant]
  5. BACTRIM [Concomitant]
  6. SALAGEN [Concomitant]

REACTIONS (5)
  - Erythema [Not Recovered/Not Resolved]
  - Feeling hot [Not Recovered/Not Resolved]
  - Dysphonia [Not Recovered/Not Resolved]
  - Flushing [Recovered/Resolved]
  - Generalised erythema [Unknown]
